FAERS Safety Report 15135012 (Version 1)
Quarter: 2018Q3

REPORT INFORMATION
  Report Type: Spontaneous
  Country: US (occurrence: US)
  Receive Date: 20180712
  Receipt Date: 20180712
  Transmission Date: 20181010
  Serious: No
  Sender: FDA-Public Use
  Company Number: US-PFIZER INC-2018280286

PATIENT
  Age: 72 Year
  Sex: Male
  Weight: 65.32 kg

DRUGS (2)
  1. MORPHINE [Concomitant]
     Active Substance: MORPHINE
     Indication: PAIN
     Dosage: 30 MG TABLET BY MOUTH ONCE OR TWICE A WEEK WHEN IT^S BAD ENOUGH
     Route: 048
  2. LYRICA [Suspect]
     Active Substance: PREGABALIN
     Indication: OSTEOPOROSIS
     Dosage: 150MG CAPSULE AND 50MG CAPSULE, 1X/DAY
     Route: 048
     Dates: start: 201708

REACTIONS (1)
  - Drug ineffective for unapproved indication [Unknown]

NARRATIVE: CASE EVENT DATE: 201708
